FAERS Safety Report 9668408 (Version 2)
Quarter: 2014Q4

REPORT INFORMATION
  Report Type: Report from Study
  Country: CA (occurrence: CA)
  Receive Date: 20131104
  Receipt Date: 20141009
  Transmission Date: 20150529
  Serious: Yes (Hospitalization, Other)
  Sender: FDA-Public Use
  Company Number: CA-AMGEN-CANSP2013076624

PATIENT
  Age: 81 Year
  Sex: Female

DRUGS (16)
  1. ATROVENT [Concomitant]
     Active Substance: IPRATROPIUM BROMIDE
  2. FUROSEMIDE. [Concomitant]
     Active Substance: FUROSEMIDE
  3. OXAZEPAM. [Concomitant]
     Active Substance: OXAZEPAM
  4. CRESTOR [Concomitant]
     Active Substance: ROSUVASTATIN CALCIUM
  5. NITROGLYCERIN. [Concomitant]
     Active Substance: NITROGLYCERIN
     Dosage: SPRAY AND PATCH
  6. NEXIUM [Concomitant]
     Active Substance: ESOMEPRAZOLE MAGNESIUM
  7. CALCIUM CITRATE [Concomitant]
     Active Substance: CALCIUM CITRATE
  8. DILTIAZEM [Concomitant]
     Active Substance: DILTIAZEM
  9. TYLENOL [Concomitant]
     Active Substance: ACETAMINOPHEN
  10. LEVODOPA [Concomitant]
     Active Substance: LEVODOPA
  11. SENOKOT [Concomitant]
     Active Substance: SENNOSIDES
  12. MELATONIN [Concomitant]
     Active Substance: MELATONIN
  13. VITAMIN D                          /00107901/ [Concomitant]
     Active Substance: ERGOCALCIFEROL
  14. ACIDOPHILUS                        /00079701/ [Concomitant]
  15. PROLIA [Suspect]
     Active Substance: DENOSUMAB
     Indication: OSTEOPOROSIS POSTMENOPAUSAL
     Dosage: 60 MG, UNK
     Route: 065
     Dates: start: 20120517
  16. DOMPERIDONE [Concomitant]
     Active Substance: DOMPERIDONE

REACTIONS (6)
  - Investigation [Unknown]
  - Respiratory tract infection [Unknown]
  - Viral infection [Unknown]
  - Arthralgia [Unknown]
  - Pain in extremity [Unknown]
  - Pneumonia [Unknown]

NARRATIVE: CASE EVENT DATE: 2012
